FAERS Safety Report 5425299-4 (Version None)
Quarter: 2007Q3

REPORT INFORMATION
  Report Type: 
  Country: None (occurrence: None)
  Receive Date: 20070824
  Receipt Date: 20070814
  Transmission Date: 20080115
  Serious: Yes (Other)
  Sender: FDA-Public Use
  Company Number: US-PFIZER INC-2007058460

PATIENT
  Sex: Male
  Weight: 88.5 kg

DRUGS (4)
  1. LYRICA [Suspect]
     Indication: PAIN MANAGEMENT
     Route: 048
  2. LYRICA [Suspect]
     Indication: NEUROPATHY PERIPHERAL
  3. HYDROCODONE BITARTRATE [Concomitant]
  4. VICODIN [Concomitant]

REACTIONS (5)
  - DRUG INEFFECTIVE [None]
  - LIBIDO DECREASED [None]
  - MEDICAL DEVICE IMPLANTATION [None]
  - SPINAL OPERATION [None]
  - SURGERY [None]
